FAERS Safety Report 10196732 (Version 1)
Quarter: 2014Q2

REPORT INFORMATION
  Report Type: Spontaneous
  Country: US (occurrence: None)
  Receive Date: 20140523
  Receipt Date: 20140523
  Transmission Date: 20141212
  Serious: Yes (Other)
  Sender: FDA-Public Use
  Company Number: None

PATIENT
  Age: 50 Year
  Sex: Female

DRUGS (3)
  1. OSPHENA [Suspect]
     Indication: GENITAL ATROPHY
     Route: 048
  2. LEVOTHYROXINE [Concomitant]
  3. MOMETASONE 0.1 % CREAM [Concomitant]

REACTIONS (1)
  - Rash [None]
